FAERS Safety Report 9699824 (Version 2)
Quarter: 2013Q4

REPORT INFORMATION
  Report Type: Spontaneous
  Country: US (occurrence: US)
  Receive Date: 20131120
  Receipt Date: 20131210
  Transmission Date: 20140711
  Serious: No
  Sender: FDA-Public Use
  Company Number: US-009507513-1311USA006904

PATIENT
  Age: 18 Year
  Sex: Female
  Weight: 72.11 kg

DRUGS (1)
  1. ETONOGESTREL IMPLANT- UNKNOWN [Suspect]
     Indication: CONTRACEPTION
     Dosage: UNK
     Route: 059
     Dates: start: 20130529, end: 20131114

REACTIONS (3)
  - Migraine [Recovered/Resolved]
  - Weight increased [Recovered/Resolved]
  - Implant site pain [Recovered/Resolved]
